FAERS Safety Report 12168834 (Version 3)
Quarter: 2016Q1

REPORT INFORMATION
  Report Type: Spontaneous
  Country: ES (occurrence: ES)
  Receive Date: 20160310
  Receipt Date: 20160324
  Transmission Date: 20160526
  Serious: Yes (Other)
  Sender: FDA-Public Use
  Company Number: ES-PFIZER INC-2016149608

PATIENT

DRUGS (3)
  1. PRISTIQ EXTENDED RELEASE [Suspect]
     Active Substance: DESVENLAFAXINE SUCCINATE
     Indication: PAROSMIA
     Dosage: 50 MG, 1X/DAY
     Route: 048
     Dates: start: 201512
  2. TESTOGEL [Concomitant]
     Active Substance: TESTOSTERONE
     Indication: HYPOGONADISM
     Dosage: UNK
     Dates: start: 2010
  3. ZONEGRAN [Concomitant]
     Active Substance: ZONISAMIDE
     Indication: MENINGIOMA
     Dosage: UNK
     Dates: start: 201508

REACTIONS (4)
  - Dyskinesia [Not Recovered/Not Resolved]
  - Product use issue [Not Recovered/Not Resolved]
  - Dizziness [Not Recovered/Not Resolved]
  - Derealisation [Not Recovered/Not Resolved]

NARRATIVE: CASE EVENT DATE: 201601
